FAERS Safety Report 9656357 (Version 2)
Quarter: 2013Q4

REPORT INFORMATION
  Report Type: Spontaneous
  Country: US (occurrence: US)
  Receive Date: 20131030
  Receipt Date: 20131106
  Transmission Date: 20140711
  Serious: No
  Sender: FDA-Public Use
  Company Number: US-PFIZER INC-2013306519

PATIENT
  Age: 55 Year
  Sex: Male
  Weight: 81.63 kg

DRUGS (4)
  1. VIAGRA [Suspect]
     Indication: ERECTILE DYSFUNCTION
     Dosage: 100 MG, AS NEEDED
     Route: 048
     Dates: start: 2001, end: 20131023
  2. LISINOPRIL [Concomitant]
     Indication: HYPERTENSION
     Dosage: 40 MG, 1X/DAY
  3. PREDNISONE [Concomitant]
     Indication: RHEUMATOID ARTHRITIS
     Dosage: 5 MG, 1X/DAY
  4. DOXYCYCLINE [Concomitant]
     Dosage: 20 MG, 1X/DAY

REACTIONS (5)
  - Glycosylated haemoglobin increased [Unknown]
  - Drug tolerance [Unknown]
  - Heart rate increased [Unknown]
  - Flushing [Unknown]
  - Drug ineffective [Unknown]
